FAERS Safety Report 7312456-5 (Version None)
Quarter: 2011Q1

REPORT INFORMATION
  Report Type: 
  Country: None (occurrence: None)
  Receive Date: 20110224
  Receipt Date: 20110216
  Transmission Date: 20110831
  Serious: Yes (Other)
  Sender: FDA-Public Use
  Company Number: PHHY2010BR35769

PATIENT
  Sex: Female

DRUGS (2)
  1. NATRILIX [Concomitant]
     Dosage: 1.5 MG
  2. DIOVAN AMLO FIX [Suspect]
     Dosage: 320/5 MG

REACTIONS (7)
  - DIABETES MELLITUS [None]
  - BEDRIDDEN [None]
  - FALL [None]
  - TREMOR [None]
  - OBESITY [None]
  - HYPOAESTHESIA ORAL [None]
  - BLOOD PRESSURE INCREASED [None]
